FAERS Safety Report 8557918-8 (Version None)
Quarter: 2012Q3

REPORT INFORMATION
  Report Type: 
  Country: None (occurrence: None)
  Receive Date: 20120801
  Receipt Date: 20120221
  Transmission Date: 20120928
  Serious: Yes (Other)
  Sender: FDA-Public Use
  Company Number: US-BAYER-2011-005417

PATIENT
  Age: 48 Year
  Sex: Female

DRUGS (22)
  1. VICOPROFEN [Concomitant]
  2. PHENERGAN HCL [Concomitant]
     Indication: NAUSEA
  3. PERCOCET [Concomitant]
     Indication: HEADACHE
  4. INTERFERON BETA-1B [Suspect]
     Indication: MULTIPLE SCLEROSIS
     Dosage: UNK
     Dates: start: 20041110
  5. INTERFERON BETA-1B [Suspect]
     Dosage: UNK
     Dates: end: 20070910
  6. CONCERTA [Concomitant]
  7. PREDNISONE [Concomitant]
  8. INTERFERON BETA-1B [Suspect]
     Dosage: UNK
     Dates: start: 20110125
  9. NUBAIN [Concomitant]
     Dosage: 10 MG, UNK
  10. TREXIMET [Concomitant]
     Indication: HEADACHE
  11. VITAMIN B-12 [Concomitant]
     Dosage: 1000 U, UNK
     Route: 042
  12. ASPIRIN [Concomitant]
  13. INTERFERON BETA-1B [Suspect]
     Dosage: UNK
     Dates: end: 20100601
  14. SOLU-MEDROL [Concomitant]
  15. BUTALBITAL ACETAMINOPHEN AND CAFFEINE [Concomitant]
  16. DILAUDID [Concomitant]
     Indication: BREAKTHROUGH PAIN
     Dosage: 2 MG, UNK
  17. ZOLOFT [Concomitant]
  18. CORTISONE ACETATE [Concomitant]
  19. TIGAN [Concomitant]
     Indication: NAUSEA
  20. INTERFERON BETA-1B [Suspect]
     Dosage: UNK
     Dates: start: 20090102, end: 20090612
  21. IBUPROFEN [Concomitant]
  22. DEPO-MEDROL [Concomitant]
     Dosage: 80 MG, UNK

REACTIONS (1)
  - HEADACHE [None]
